FAERS Safety Report 8535361-5 (Version None)
Quarter: 2012Q3

REPORT INFORMATION
  Report Type: 
  Country: None (occurrence: None)
  Receive Date: 20120725
  Receipt Date: 20120717
  Transmission Date: 20120928
  Serious: No
  Sender: FDA-Public Use
  Company Number: US-BIOGENIDEC-2012BI026410

PATIENT
  Sex: Female

DRUGS (1)
  1. TYSABRI [Suspect]
     Indication: MULTIPLE SCLEROSIS
     Route: 042
     Dates: start: 20090313

REACTIONS (6)
  - MEMORY IMPAIRMENT [None]
  - GOUT [None]
  - TREMOR [None]
  - PAIN IN EXTREMITY [None]
  - BACK PAIN [None]
  - BALANCE DISORDER [None]
